FAERS Safety Report 16674733 (Version 1)
Quarter: 2019Q3

REPORT INFORMATION
  Report Type: Spontaneous
  Country: GB (occurrence: GB)
  Receive Date: 20190806
  Receipt Date: 20190806
  Transmission Date: 20191004
  Serious: Yes (Other)
  Sender: FDA-Public Use
  Company Number: GB-PFIZER INC-2019329460

PATIENT
  Age: 72 Year
  Sex: Male

DRUGS (3)
  1. PACLITAXEL. [Suspect]
     Active Substance: PACLITAXEL
     Indication: ADJUVANT THERAPY
     Dosage: UNK, WEEKLY (FULL DOSE, STARTED 3 MONTHS AFTER HIS LAST ELECTROCHEMOTHERAPY SESSION)
  2. PACLITAXEL. [Suspect]
     Active Substance: PACLITAXEL
     Indication: INVASIVE DUCTAL BREAST CARCINOMA
  3. PACLITAXEL. [Suspect]
     Active Substance: PACLITAXEL
     Indication: ANGIOSARCOMA
     Dosage: UNK (DOSE WAS DECREASED)

REACTIONS (4)
  - Fatigue [Recovering/Resolving]
  - Toxicity to various agents [Recovering/Resolving]
  - Drug intolerance [Recovering/Resolving]
  - Neutropenia [Recovering/Resolving]
